FAERS Safety Report 15213792 (Version 1)
Quarter: 2018Q3

REPORT INFORMATION
  Report Type: Spontaneous
  Country: US (occurrence: US)
  Receive Date: 20180730
  Receipt Date: 20180730
  Transmission Date: 20181010
  Serious: No
  Sender: FDA-Public Use
  Company Number: US-SA-2018SA172063

PATIENT
  Age: 51 Year
  Sex: Female

DRUGS (1)
  1. LANTUS SOLOSTAR [Suspect]
     Active Substance: INSULIN GLARGINE
     Indication: TYPE 2 DIABETES MELLITUS
     Dosage: 25 U, QD

REACTIONS (6)
  - Dizziness [Unknown]
  - Amblyopia [Unknown]
  - Skin burning sensation [Unknown]
  - Headache [Unknown]
  - Gait disturbance [Unknown]
  - Rhinorrhoea [Unknown]
